FAERS Safety Report 20480111 (Version 1)
Quarter: 2022Q1

REPORT INFORMATION
  Report Type: Spontaneous
  Country: US (occurrence: None)
  Receive Date: 20220215
  Receipt Date: 20220215
  Transmission Date: 20220423
  Serious: Yes (unspecified)
  Sender: FDA-Public Use
  Company Number: None

PATIENT
  Age: 46 Year
  Sex: Male
  Weight: 87.75 kg

DRUGS (4)
  1. FLUOCINONIDE [Suspect]
     Active Substance: FLUOCINONIDE
     Indication: Inner ear disorder
     Dosage: OTHER QUANTITY : 5 DROP(S);?FREQUENCY : 3 TIMES A DAY;?
     Route: 001
     Dates: start: 20220215, end: 20220215
  2. FLUOCINONIDE [Suspect]
     Active Substance: FLUOCINONIDE
     Indication: Skin irritation
  3. CITALOPRAM [Concomitant]
     Active Substance: CITALOPRAM HYDROBROMIDE
  4. METHYLPHENIDATE [Concomitant]
     Active Substance: METHYLPHENIDATE

REACTIONS (2)
  - Ear discomfort [None]
  - Application site pain [None]

NARRATIVE: CASE EVENT DATE: 20220215
